FAERS Safety Report 12045890 (Version 1)
Quarter: 2016Q1

REPORT INFORMATION
  Report Type: Report from Study
  Country: DE (occurrence: DE)
  Receive Date: 20160208
  Receipt Date: 20160208
  Transmission Date: 20160526
  Serious: Yes (Hospitalization)
  Sender: FDA-Public Use
  Company Number: DE-BIOGEN-2016BI00185091

PATIENT
  Age: 57 Year
  Sex: Female

DRUGS (3)
  1. BENALAPRIL [Concomitant]
     Active Substance: ENALAPRIL MALEATE
     Indication: MYOCARDIAL INFARCTION
     Route: 065
  2. TECFIDERA [Suspect]
     Active Substance: DIMETHYL FUMARATE
     Indication: MULTIPLE SCLEROSIS
     Route: 048
     Dates: start: 20150117
  3. HERZ ASS [Concomitant]
     Indication: MYOCARDIAL INFARCTION
     Route: 065

REACTIONS (1)
  - Cardiac disorder [Recovered/Resolved with Sequelae]

NARRATIVE: CASE EVENT DATE: 201509
